FAERS Safety Report 18076715 (Version 1)
Quarter: 2020Q3

REPORT INFORMATION
  Report Type: Spontaneous
  Country: FR (occurrence: FR)
  Receive Date: 20200728
  Receipt Date: 20200728
  Transmission Date: 20201103
  Serious: Yes (Life-Threatening)
  Sender: FDA-Public Use
  Company Number: FR-TEVA-2020-FR-1805080

PATIENT
  Age: 95 Year
  Sex: Male
  Weight: 61 kg

DRUGS (1)
  1. PREDNISONE. [Suspect]
     Active Substance: PREDNISONE
     Indication: PRODUCT USED FOR UNKNOWN INDICATION
     Dosage: 60 MG
     Route: 048
     Dates: start: 202002, end: 20200512

REACTIONS (1)
  - Diabetic hyperosmolar coma [Recovering/Resolving]

NARRATIVE: CASE EVENT DATE: 20200513
